FAERS Safety Report 5747629-6 (Version None)
Quarter: 2008Q2

REPORT INFORMATION
  Report Type: 
  Country: None (occurrence: None)
  Receive Date: 20080523
  Receipt Date: 20080514
  Transmission Date: 20081010
  Serious: Yes (Hospitalization)
  Sender: FDA-Public Use
  Company Number: FI-AMGEN-US272204

PATIENT
  Sex: Male
  Weight: 39 kg

DRUGS (4)
  1. ENBREL [Suspect]
     Indication: JUVENILE ARTHRITIS
     Route: 058
     Dates: start: 20070827, end: 20080326
  2. ENBREL [Suspect]
     Route: 058
     Dates: start: 20080429
  3. ARAVA [Suspect]
     Indication: JUVENILE ARTHRITIS
     Route: 048
     Dates: start: 20060915, end: 20080326
  4. VITAMINS NOS [Concomitant]
     Dosage: UNSPECIFIED

REACTIONS (5)
  - CONVULSION [None]
  - EPILEPSY [None]
  - HEADACHE [None]
  - HEMIPARESIS [None]
  - NAUSEA [None]
